FAERS Safety Report 9858127 (Version 3)
Quarter: 2014Q2

REPORT INFORMATION
  Report Type: Spontaneous
  Country: SE (occurrence: SE)
  Receive Date: 20140131
  Receipt Date: 20140520
  Transmission Date: 20141212
  Serious: Yes (Other)
  Sender: FDA-Public Use
  Company Number: SE-JNJFOC-20140112566

PATIENT
  Age: 27 Year
  Sex: Female

DRUGS (14)
  1. CONCERTA [Suspect]
     Indication: IMPULSE-CONTROL DISORDER
     Route: 048
  2. CONCERTA [Suspect]
     Indication: IMPULSE-CONTROL DISORDER
     Route: 048
     Dates: start: 20131129
  3. TEMESTA [Suspect]
     Indication: PRODUCT USED FOR UNKNOWN INDICATION
     Dosage: ORDINARY DOSE
     Route: 048
     Dates: start: 20130709
  4. TEMESTA [Suspect]
     Indication: PRODUCT USED FOR UNKNOWN INDICATION
     Route: 048
     Dates: start: 20131207, end: 20131207
  5. ZOPICLONE [Suspect]
     Indication: INITIAL INSOMNIA
     Dosage: ORDINARY DOSING
     Route: 048
     Dates: start: 20130921
  6. ZOPICLONE [Suspect]
     Indication: INITIAL INSOMNIA
     Dosage: AT ONCE
     Route: 048
     Dates: start: 20131207, end: 20131207
  7. OMEPRAZOLE [Concomitant]
     Route: 065
  8. MOVICOL [Concomitant]
     Route: 065
  9. NEXPLANON [Concomitant]
     Route: 059
  10. PULMICORT [Concomitant]
     Route: 055
  11. SINGULAIR [Concomitant]
     Route: 048
  12. PAPAVERINE [Concomitant]
     Route: 048
  13. VENTOLINE INHALER [Concomitant]
     Dosage: 0.2 MG PER DOSE
     Route: 055
  14. CETIRIZINE [Concomitant]
     Route: 065

REACTIONS (5)
  - Toxicity to various agents [Unknown]
  - Suicide attempt [Unknown]
  - Abdominal pain upper [Unknown]
  - Fatigue [Unknown]
  - Dysarthria [Unknown]
